FAERS Safety Report 15065509 (Version 4)
Quarter: 2021Q4

REPORT INFORMATION
  Report Type: Other
  Country: US (occurrence: None)
  Receive Date: 20180626
  Receipt Date: 20211229
  Transmission Date: 20220303
  Serious: Yes (Hospitalization)
  Sender: FDA-Public Use
  Company Number: US-ROCHE-2142944

PATIENT
  Age: 50 Year
  Sex: Female
  Weight: 111.68 kg

DRUGS (16)
  1. OCREVUS [Suspect]
     Active Substance: OCRELIZUMAB
     Indication: Relapsing-remitting multiple sclerosis
     Dosage: DATE OF TREATMENT = 08/NOV/2018, 15/MAY/2019 AND 18/NOV/2019.
     Route: 042
     Dates: start: 20180510
  2. OCREVUS [Suspect]
     Active Substance: OCRELIZUMAB
     Dosage: 300 MG DAY 1 AND DAY 15, 600 MG EVERY 6 MONTHS
     Route: 042
     Dates: start: 201805
  3. OCREVUS [Suspect]
     Active Substance: OCRELIZUMAB
     Route: 042
     Dates: start: 20191118
  4. OCREVUS [Suspect]
     Active Substance: OCRELIZUMAB
     Route: 042
     Dates: start: 2019
  5. SOLU-MEDROL [Suspect]
     Active Substance: METHYLPREDNISOLONE SODIUM SUCCINATE
     Indication: Multiple sclerosis
     Dosage: INDICATION: LOST FEELINGS IN BOTH LEGS.
     Route: 065
     Dates: start: 20180613, end: 20180617
  6. GABAPENTIN [Concomitant]
     Active Substance: GABAPENTIN
     Route: 048
     Dates: start: 1997
  7. PRAMIPEXOLE [Concomitant]
     Active Substance: PRAMIPEXOLE
     Route: 048
     Dates: start: 2019
  8. MODAFINIL [Concomitant]
     Active Substance: MODAFINIL
     Indication: Fatigue
     Route: 048
  9. TEMAZEPAM [Concomitant]
     Active Substance: TEMAZEPAM
     Route: 048
  10. DULOXETINE [Concomitant]
     Active Substance: DULOXETINE
  11. MODAFINIL [Concomitant]
     Active Substance: MODAFINIL
  12. OXYCODONE [Concomitant]
     Active Substance: OXYCODONE
  13. PRAMIPEXOLE [Concomitant]
     Active Substance: PRAMIPEXOLE
  14. TEMAZEPAM [Concomitant]
     Active Substance: TEMAZEPAM
  15. AUGMENTIN [Concomitant]
     Active Substance: AMOXICILLIN\CLAVULANATE POTASSIUM
  16. BENZONATATE [Concomitant]
     Active Substance: BENZONATATE

REACTIONS (4)
  - Multiple sclerosis [Recovered/Resolved]
  - Weight increased [Unknown]
  - Bronchitis [Recovered/Resolved]
  - Nasopharyngitis [Unknown]

NARRATIVE: CASE EVENT DATE: 20180613
